FAERS Safety Report 11044019 (Version 1)
Quarter: 2015Q2

REPORT INFORMATION
  Report Type: Spontaneous
  Country: CA (occurrence: CA)
  Receive Date: 20150417
  Receipt Date: 20150417
  Transmission Date: 20150821
  Serious: Yes (Hospitalization)
  Sender: FDA-Public Use
  Company Number: CA-TEVA-555069ACC

PATIENT
  Age: 39 Year
  Sex: Male
  Weight: 104.42 kg

DRUGS (1)
  1. OLANZAPINE ODT [Suspect]
     Active Substance: OLANZAPINE
     Indication: SCHIZOPHRENIA
     Dosage: 20 MILLIGRAM DAILY;
     Route: 060

REACTIONS (4)
  - Thinking abnormal [Recovered/Resolved]
  - Hallucination, auditory [Recovered/Resolved]
  - Condition aggravated [Recovered/Resolved]
  - Psychiatric symptom [Recovered/Resolved]
